FAERS Safety Report 10178178 (Version 3)
Quarter: 2014Q2

REPORT INFORMATION
  Report Type: Spontaneous
  Country: GB (occurrence: GB)
  Receive Date: 20140519
  Receipt Date: 20140616
  Transmission Date: 20141212
  Serious: Yes (Hospitalization)
  Sender: FDA-Public Use
  Company Number: GB-ROCHE-1400425

PATIENT
  Age: 62 Year
  Sex: Female
  Weight: 56.4 kg

DRUGS (19)
  1. RITUXIMAB [Suspect]
     Indication: PRODUCT USED FOR UNKNOWN INDICATION
     Route: 065
     Dates: start: 20140210, end: 20140321
  2. CYCLOPHOSPHAMIDE [Suspect]
     Indication: DIFFUSE LARGE B-CELL LYMPHOMA
     Route: 065
     Dates: start: 20140210, end: 20140321
  3. DOMPERIDONE [Suspect]
     Indication: ANTIEMETIC SUPPORTIVE CARE
     Route: 048
     Dates: start: 20140210
  4. DOXORUBICIN [Suspect]
     Indication: DIFFUSE LARGE B-CELL LYMPHOMA
     Route: 065
     Dates: start: 20140210, end: 20140321
  5. PREDNISOLONE [Suspect]
     Indication: DIFFUSE LARGE B-CELL LYMPHOMA
     Route: 065
     Dates: start: 20140210, end: 20140325
  6. VINCRISTINE [Suspect]
     Indication: DIFFUSE LARGE B-CELL LYMPHOMA
     Dosage: DOSAGE FORM: UNSPECIFIED
     Route: 065
     Dates: start: 20140210, end: 20140321
  7. VELCADE [Suspect]
     Indication: DIFFUSE LARGE B-CELL LYMPHOMA
     Route: 065
     Dates: start: 20140228, end: 20140328
  8. ACYCLOVIR [Concomitant]
     Route: 048
     Dates: start: 20140210
  9. ALLOPURINOL [Concomitant]
     Route: 065
     Dates: start: 20140210, end: 20140301
  10. BORTEZOMIB [Concomitant]
     Route: 065
     Dates: start: 20140228
  11. CO-TRIMOXAZOLE [Concomitant]
     Route: 048
     Dates: start: 20140210
  12. DIFFLAM [Concomitant]
     Route: 065
     Dates: start: 20140210
  13. FLUCONAZOLE [Concomitant]
     Route: 048
     Dates: start: 20140210
  14. GLYCERINE [Concomitant]
     Route: 065
     Dates: start: 20140331
  15. HALOPERIDOL [Concomitant]
     Route: 048
     Dates: start: 20140317
  16. METOCLOPRAMIDE [Concomitant]
     Route: 048
     Dates: start: 20140317
  17. OMEPRAZOLE [Concomitant]
     Route: 048
     Dates: start: 20140210
  18. PARACETAMOL [Concomitant]
     Route: 065
     Dates: start: 20140210
  19. DOCUSATE SODIUM [Concomitant]
     Route: 048
     Dates: start: 20140331

REACTIONS (9)
  - Febrile neutropenia [Recovered/Resolved]
  - Diarrhoea [Unknown]
  - Duodenal stenosis [Unknown]
  - Vomiting [Not Recovered/Not Resolved]
  - Nausea [Recovered/Resolved]
  - Constipation [Recovered/Resolved]
  - Pyrexia [Recovered/Resolved]
  - Intestinal dilatation [Unknown]
  - Abdominal pain [Recovered/Resolved]
